FAERS Safety Report 14261233 (Version 2)
Quarter: 2018Q1

REPORT INFORMATION
  Report Type: Report from Study
  Country: BR (occurrence: BR)
  Receive Date: 20171207
  Receipt Date: 20180327
  Transmission Date: 20180508
  Serious: Yes (Life-Threatening, Hospitalization)
  Sender: FDA-Public Use
  Company Number: BR-UCBSA-2017049435

PATIENT
  Age: 88 Year
  Sex: Male

DRUGS (2)
  1. LEVETIRACETAM. [Suspect]
     Active Substance: LEVETIRACETAM
     Indication: SEIZURE
     Dosage: 1000 MG, 3X/DAY (TID)
     Route: 048
     Dates: start: 201612
  2. VIMPAT [Suspect]
     Active Substance: LACOSAMIDE
     Indication: SEIZURE
     Dosage: 100 MG, 3X/DAY (TID)
     Route: 048
     Dates: start: 201707

REACTIONS (4)
  - Seizure [Recovered/Resolved]
  - Drug ineffective [Unknown]
  - Cardiac arrest [Unknown]
  - Off label use [Unknown]

NARRATIVE: CASE EVENT DATE: 201612
